FAERS Safety Report 14423475 (Version 1)
Quarter: 2018Q1

REPORT INFORMATION
  Report Type: Spontaneous
  Country: US (occurrence: US)
  Receive Date: 20180123
  Receipt Date: 20180123
  Transmission Date: 20180509
  Serious: No
  Sender: FDA-Public Use
  Company Number: US-TEVA-815159ACC

PATIENT
  Sex: Male

DRUGS (1)
  1. PERMETHRIN 1% LOTION [Suspect]
     Active Substance: PERMETHRIN
     Indication: LICE INFESTATION
     Dates: start: 20171008, end: 20171008

REACTIONS (3)
  - Accidental exposure to product [Unknown]
  - Rash [Unknown]
  - Acne [Unknown]

NARRATIVE: CASE EVENT DATE: 20171008
